FAERS Safety Report 15667574 (Version 1)
Quarter: 2018Q4

REPORT INFORMATION
  Report Type: Spontaneous
  Country: US (occurrence: US)
  Receive Date: 20181128
  Receipt Date: 20181128
  Transmission Date: 20190205
  Serious: No
  Sender: FDA-Public Use
  Company Number: US-SEPTODONT-201804761

PATIENT

DRUGS (1)
  1. CITANEST PLAIN [Suspect]
     Active Substance: PRILOCAINE HYDROCHLORIDE
     Indication: DENTAL LOCAL ANAESTHESIA

REACTIONS (1)
  - Hypoaesthesia [Unknown]
